FAERS Safety Report 8367580-5 (Version None)
Quarter: 2012Q2

REPORT INFORMATION
  Report Type: 
  Country: None (occurrence: None)
  Receive Date: 20120517
  Receipt Date: 20120516
  Transmission Date: 20120825
  Serious: Yes (Other)
  Sender: FDA-Public Use
  Company Number: US-PFIZER INC-2012095664

PATIENT
  Sex: Female
  Weight: 52.154 kg

DRUGS (8)
  1. NUCYNTA [Concomitant]
     Indication: PAIN
     Dosage: UNK, TWICE A DAY
     Dates: start: 20110501
  2. TRAZODONE [Concomitant]
     Indication: NEUROPATHY PERIPHERAL
  3. TRAZODONE [Concomitant]
     Indication: MIDDLE INSOMNIA
  4. SINGULAIR [Concomitant]
     Indication: ASTHMA
     Dosage: 10 MG, DAILY
  5. TRAZODONE [Concomitant]
     Indication: SLEEP DISORDER
     Dosage: 100 MG, DAILY AT NIGHT
     Dates: start: 20111101
  6. ZANTAC [Concomitant]
     Indication: DYSPEPSIA
     Dosage: 300 MG, DAILY
  7. LYRICA [Suspect]
     Indication: NEURALGIA
  8. LYRICA [Suspect]
     Indication: HEADACHE
     Dosage: 25 MG, 2X/DAY
     Route: 048
     Dates: start: 20120329

REACTIONS (4)
  - CRYING [None]
  - MUSCLE TWITCHING [None]
  - SWOLLEN TONGUE [None]
  - EMOTIONAL DISORDER [None]
